FAERS Safety Report 20933365 (Version 1)
Quarter: 2022Q2

REPORT INFORMATION
  Report Type: Spontaneous
  Country: TR (occurrence: TR)
  Receive Date: 20220608
  Receipt Date: 20220608
  Transmission Date: 20220720
  Serious: Yes (Other)
  Sender: FDA-Public Use
  Company Number: TR-ORGANON-O2206TUR000164

PATIENT
  Age: 87 Year
  Sex: Female

DRUGS (7)
  1. BETAMETHASONE DIPROPIONATE\BETAMETHASONE SODIUM PHOSPHATE [Suspect]
     Active Substance: BETAMETHASONE DIPROPIONATE\BETAMETHASONE SODIUM PHOSPHATE
     Indication: Pain in extremity
     Dosage: STRENGTH: 2 MG/1 ML + 5 MG/1 ML, TWICE
     Route: 008
  2. BETAMETHASONE DIPROPIONATE\BETAMETHASONE SODIUM PHOSPHATE [Suspect]
     Active Substance: BETAMETHASONE DIPROPIONATE\BETAMETHASONE SODIUM PHOSPHATE
     Indication: Pain
  3. BUPIVACAINE [Suspect]
     Active Substance: BUPIVACAINE
     Indication: Pain in extremity
     Dosage: 10 MILLILITER
     Route: 008
  4. BUPIVACAINE [Suspect]
     Active Substance: BUPIVACAINE
     Indication: Pain
  5. SODIUM CHLORIDE [Suspect]
     Active Substance: SODIUM CHLORIDE
     Indication: Pain in extremity
     Dosage: 10 MILLILITER
     Route: 008
  6. SODIUM CHLORIDE [Suspect]
     Active Substance: SODIUM CHLORIDE
     Indication: Pain
  7. INSULIN NOS [Concomitant]
     Active Substance: INSULIN NOS
     Indication: Type 2 diabetes mellitus
     Dosage: UNK
     Route: 058

REACTIONS (1)
  - Posterior reversible encephalopathy syndrome [Recovering/Resolving]
